FAERS Safety Report 6123996-9 (Version None)
Quarter: 2009Q1

REPORT INFORMATION
  Report Type: 
  Country: None (occurrence: None)
  Receive Date: 20090318
  Receipt Date: 20090318
  Transmission Date: 20090719
  Serious: Yes (Other)
  Sender: FDA-Public Use
  Company Number: None

PATIENT
  Sex: Female
  Weight: 39.7 kg

DRUGS (1)
  1. RAPAMUNE [Suspect]
     Dosage: 2.5 ML BID ORAL STOPPED MEDS. 02/26 @ 7PM
     Route: 048
     Dates: start: 20080917, end: 20090226

REACTIONS (5)
  - DYSARTHRIA [None]
  - FATIGUE [None]
  - MUSCULAR WEAKNESS [None]
  - RADIATION INJURY [None]
  - VISUAL PATHWAY DISORDER [None]
